FAERS Safety Report 20059557 (Version 1)
Quarter: 2021Q4

REPORT INFORMATION
  Report Type: Spontaneous
  Country: US (occurrence: US)
  Receive Date: 20211111
  Receipt Date: 20211111
  Transmission Date: 20220303
  Serious: No
  Sender: FDA-Public Use
  Company Number: US-PFIZER INC-2020312885

PATIENT
  Age: 70 Year
  Sex: Male

DRUGS (3)
  1. DILANTIN [Suspect]
     Active Substance: PHENYTOIN
     Indication: Epilepsy
     Dosage: UNK (100 AND 30 MILLIGRAMS)
  2. DILANTIN [Suspect]
     Active Substance: PHENYTOIN
     Indication: Seizure
     Dosage: 100 MG
  3. DILANTIN [Suspect]
     Active Substance: PHENYTOIN
     Dosage: 100 MG

REACTIONS (1)
  - Memory impairment [Unknown]
